FAERS Safety Report 15005717 (Version 1)
Quarter: 2018Q2

REPORT INFORMATION
  Report Type: Spontaneous
  Country: US (occurrence: US)
  Receive Date: 20180613
  Receipt Date: 20180613
  Transmission Date: 20180711
  Serious: Yes (Other)
  Sender: FDA-Public Use
  Company Number: PHHY2018US016245

PATIENT
  Sex: Male

DRUGS (1)
  1. TACROLIMUS. [Suspect]
     Active Substance: TACROLIMUS
     Indication: COLITIS ULCERATIVE
     Dosage: 0.1 MG/KG, UNK (0.05-0.1 MG/KG)
     Route: 048

REACTIONS (2)
  - Renal failure [Recovered/Resolved]
  - Product use in unapproved indication [Unknown]
